FAERS Safety Report 15659017 (Version 2)
Quarter: 2018Q4

REPORT INFORMATION
  Report Type: Spontaneous
  Country: US (occurrence: US)
  Receive Date: 20181127
  Receipt Date: 20181129
  Transmission Date: 20190205
  Serious: Yes (Other)
  Sender: FDA-Public Use
  Company Number: US-CIPLA LTD.-2018US22840

PATIENT

DRUGS (2)
  1. WARFARIN [Suspect]
     Active Substance: WARFARIN
     Indication: PROSTHETIC CARDIAC VALVE THROMBOSIS
     Dosage: UNK
     Route: 065
  2. HEPARIN [Suspect]
     Active Substance: HEPARIN SODIUM
     Indication: PROSTHETIC CARDIAC VALVE THROMBOSIS
     Dosage: UNK
     Route: 042

REACTIONS (2)
  - Disease progression [Recovered/Resolved]
  - Treatment failure [Unknown]
